FAERS Safety Report 7121891-X (Version None)
Quarter: 2010Q4

REPORT INFORMATION
  Report Type: 
  Country: None (occurrence: None)
  Receive Date: 20101124
  Receipt Date: 20101119
  Transmission Date: 20110411
  Serious: Yes (Other)
  Sender: FDA-Public Use
  Company Number: US-MILLENNIUM PHARMACEUTICALS, INC.-2010-05872

PATIENT

DRUGS (3)
  1. VELCADE [Suspect]
     Indication: MULTIPLE MYELOMA
     Route: 040
  2. BUSULFAN [Suspect]
     Indication: MULTIPLE MYELOMA
     Dosage: 130 MG/KG, CYCLIC
     Route: 042
  3. MELPHALAN HYDROCHLORIDE [Suspect]
     Indication: MULTIPLE MYELOMA
     Dosage: 140 MG/M2, QD
     Route: 042

REACTIONS (2)
  - CLOSTRIDIUM DIFFICILE COLITIS [None]
  - URINARY TRACT INFECTION [None]
